FAERS Safety Report 24850911 (Version 4)
Quarter: 2025Q1

REPORT INFORMATION
  Report Type: Spontaneous
  Country: CZ (occurrence: CZ)
  Receive Date: 20250116
  Receipt Date: 20250210
  Transmission Date: 20250409
  Serious: Yes (Hospitalization, Congenital Anomaly, Other)
  Sender: MYLAN
  Company Number: CZ-PMCS-2024002136

PATIENT
  Age: 72 Year
  Sex: Female

DRUGS (26)
  1. DAPAGLIFLOZIN [Suspect]
     Active Substance: DAPAGLIFLOZIN
     Indication: Type 2 diabetes mellitus
     Route: 065
     Dates: start: 202312
  2. METFORMIN [Suspect]
     Active Substance: METFORMIN HYDROCHLORIDE
     Indication: Type 2 diabetes mellitus
     Dosage: 1850 MILLIGRAM, QD
     Route: 065
     Dates: end: 202401
  3. PIPERACILLIN SODIUM\TAZOBACTAM SODIUM [Suspect]
     Active Substance: PIPERACILLIN SODIUM\TAZOBACTAM SODIUM
     Indication: Wound infection
     Dosage: UNK, Q6H
     Route: 065
     Dates: start: 20240222
  4. ASPIRIN [Suspect]
     Active Substance: ASPIRIN
     Indication: Product used for unknown indication
     Route: 065
  5. ACETAMINOPHEN [Suspect]
     Active Substance: ACETAMINOPHEN
     Indication: Product used for unknown indication
     Route: 065
  6. DICLOFENAC [Suspect]
     Active Substance: DICLOFENAC
     Indication: Product used for unknown indication
     Route: 065
  7. DULAGLUTIDE [Suspect]
     Active Substance: DULAGLUTIDE
     Indication: Type 2 diabetes mellitus
     Dosage: 0.75 MILLIGRAM, QW
     Route: 058
  8. ALLOPURINOL [Suspect]
     Active Substance: ALLOPURINOL
     Indication: Product used for unknown indication
     Route: 065
     Dates: start: 202301
  9. ALLOPURINOL [Suspect]
     Active Substance: ALLOPURINOL
     Route: 065
     Dates: start: 20240106, end: 20240109
  10. FUROSEMIDE [Suspect]
     Active Substance: FUROSEMIDE
     Indication: Product used for unknown indication
     Dosage: 250 MILLIGRAM, QD (PER 24H CONTINUOUSLY)
     Route: 042
  11. FUROSEMIDE [Suspect]
     Active Substance: FUROSEMIDE
     Dosage: 62.5 MILLIGRAM, QD
     Route: 065
  12. GLIQUIDONE [Suspect]
     Active Substance: GLIQUIDONE
     Indication: Product used for unknown indication
     Dosage: 60 MILLIGRAM, QD (60 MG DAILY)
     Route: 065
  13. BETAXOLOL [Concomitant]
     Active Substance: BETAXOLOL
     Dosage: 10 MILLIGRAM, QD
     Route: 065
  14. POTASSIUM CHLORIDE [Concomitant]
     Active Substance: POTASSIUM CHLORIDE
     Dosage: 500 MILLIGRAM, QD
     Route: 065
  15. DIOSMIN\HESPERIDIN [Concomitant]
     Active Substance: DIOSMIN\HESPERIDIN
     Dosage: 1000 MILLIGRAM, QD
     Route: 065
  16. FOSINOPRIL [Concomitant]
     Active Substance: FOSINOPRIL
     Dosage: 20 MILLIGRAM, QD
     Route: 065
  17. BACITRACIN;NEOMYCIN [Concomitant]
     Indication: Congenital musculoskeletal disorder of limbs
     Route: 061
  18. EZETIMIBE [Concomitant]
     Active Substance: EZETIMIBE
     Indication: Hyperlipidaemia
     Dosage: 10 MILLIGRAM, QD
     Route: 065
  19. CLINDAMYCIN [Concomitant]
     Active Substance: CLINDAMYCIN
     Indication: Congenital musculoskeletal disorder of limbs
     Route: 065
     Dates: end: 20240222
  20. NOREPINEPHRINE BITARTRATE [Concomitant]
     Active Substance: NOREPINEPHRINE BITARTRATE
     Indication: Hypotension
     Route: 065
  21. INSULIN NOS [Concomitant]
     Active Substance: INSULIN NOS
     Indication: Diabetes mellitus
     Route: 065
  22. PIPERACILLIN AND TAZOBACTAM [Concomitant]
     Active Substance: PIPERACILLIN SODIUM\TAZOBACTAM SODIUM
     Indication: Congenital musculoskeletal disorder of limbs
     Route: 042
  23. AMIKACIN [Concomitant]
     Active Substance: AMIKACIN
     Indication: Congenital musculoskeletal disorder of limbs
     Route: 065
  24. METHYLPREDNISOLONE [Concomitant]
     Active Substance: METHYLPREDNISOLONE
     Indication: Drug reaction with eosinophilia and systemic symptoms
     Route: 042
  25. METHYLPREDNISOLONE [Concomitant]
     Active Substance: METHYLPREDNISOLONE
     Indication: Drug reaction with eosinophilia and systemic symptoms
     Route: 048
  26. PREDNISONE [Concomitant]
     Active Substance: PREDNISONE
     Indication: Drug reaction with eosinophilia and systemic symptoms
     Route: 065

REACTIONS (11)
  - Drug reaction with eosinophilia and systemic symptoms [Recovered/Resolved]
  - Congenital musculoskeletal disorder of limbs [Unknown]
  - Diabetic foot [Not Recovered/Not Resolved]
  - Renal failure [Recovered/Resolved]
  - Asthenia [Unknown]
  - Nausea [Unknown]
  - Vomiting [Unknown]
  - Pruritus [Unknown]
  - Rash [Unknown]
  - Drug ineffective [Unknown]
  - Drug intolerance [Unknown]

NARRATIVE: CASE EVENT DATE: 20240101
